FAERS Safety Report 25265380 (Version 1)
Quarter: 2025Q2

REPORT INFORMATION
  Report Type: Spontaneous
  Country: GB (occurrence: GB)
  Receive Date: 20250502
  Receipt Date: 20250502
  Transmission Date: 20250717
  Serious: Yes (Other)
  Sender: VERTEX
  Company Number: None

PATIENT
  Sex: Female
  Weight: 54 kg

DRUGS (3)
  1. KALYDECO [Suspect]
     Active Substance: IVACAFTOR
     Indication: Cystic fibrosis
     Route: 048
  2. CALCIUM\VITAMIN D [Concomitant]
     Active Substance: CALCIUM\VITAMIN D
     Indication: Seasonal allergy
  3. FEXOFENADINE [Concomitant]
     Active Substance: FEXOFENADINE HYDROCHLORIDE
     Indication: Seasonal allergy

REACTIONS (2)
  - Suicidal ideation [Recovered/Resolved]
  - Depressed mood [Recovered/Resolved]
